FAERS Safety Report 25266199 (Version 1)
Quarter: 2025Q2

REPORT INFORMATION
  Report Type: Spontaneous
  Country: US (occurrence: US)
  Receive Date: 20250504
  Receipt Date: 20250504
  Transmission Date: 20250717
  Serious: Yes (Other)
  Sender: LP PHARMACEUTICALS INC
  Company Number: US-LP Pharmaceuticals Inc -2176106

PATIENT

DRUGS (1)
  1. PRAMIPEXOLE DIHYDROCHLORIDE EXTENDED-RELEASE [Suspect]
     Active Substance: PRAMIPEXOLE DIHYDROCHLORIDE
     Indication: Parkinson^s disease

REACTIONS (2)
  - Foetal hypokinesia [Unknown]
  - Foetal exposure during pregnancy [Unknown]
